FAERS Safety Report 24888370 (Version 1)
Quarter: 2025Q1

REPORT INFORMATION
  Report Type: Spontaneous
  Country: MA (occurrence: MA)
  Receive Date: 20250127
  Receipt Date: 20250127
  Transmission Date: 20250409
  Serious: Yes (Disabling)
  Sender: JUBILANT
  Company Number: None

PATIENT
  Age: 30 Year
  Sex: Male

DRUGS (5)
  1. RISPERIDONE [Suspect]
     Active Substance: RISPERIDONE
     Indication: Schizophrenia
     Dosage: 2 MG, ONCE PER DAY
     Route: 065
     Dates: start: 202401, end: 2024
  2. RISPERIDONE [Suspect]
     Active Substance: RISPERIDONE
     Dosage: 4 MG, ONCE PER DAY
     Route: 065
     Dates: start: 2024, end: 2024
  3. RISPERIDONE [Suspect]
     Active Substance: RISPERIDONE
     Dosage: 6 MG, ONCE PER DAY
     Route: 065
     Dates: start: 2024, end: 2024
  4. CHLORPROMAZINE [Concomitant]
     Active Substance: CHLORPROMAZINE
     Indication: Schizophrenia
     Dosage: 250 MG, ONCE PER DAY
     Route: 065
     Dates: start: 202401, end: 2024
  5. ALPRAZOLAM [Concomitant]
     Active Substance: ALPRAZOLAM
     Indication: Schizophrenia
     Dosage: 1.5 MG, ONCE PER DAY
     Route: 065
     Dates: start: 202401, end: 2024

REACTIONS (1)
  - Dysphemia [Recovering/Resolving]

NARRATIVE: CASE EVENT DATE: 20240101
